FAERS Safety Report 7265057-1 (Version None)
Quarter: 2011Q1

REPORT INFORMATION
  Report Type: 
  Country: None (occurrence: None)
  Receive Date: 20110131
  Receipt Date: 20110120
  Transmission Date: 20110831
  Serious: Yes (Hospitalization, Other)
  Sender: FDA-Public Use
  Company Number: US-TYCO HEALTHCARE/MALLINCKRODT-T200900882

PATIENT
  Sex: Female
  Weight: 65.2 kg

DRUGS (13)
  1. EPOGEN [Concomitant]
  2. METOPROLOL [Concomitant]
     Dosage: 100 MG, BID
     Route: 048
  3. CATAPRES-TTS-1 [Concomitant]
     Dosage: 3 PATCHES WEEKLY
     Route: 062
  4. ALDOMET                            /00000101/ [Concomitant]
     Dosage: 500 MG, BID
     Route: 048
  5. LOVASTATIN [Concomitant]
     Dosage: 40 MG QHS
  6. IRON SULFATETHIAMIN COMPOUND TAB [Concomitant]
  7. HYDRALAZINE [Concomitant]
     Dosage: 100 MG, BID
     Route: 048
  8. ASPIRIN [Concomitant]
     Dosage: 352 MG, QD
     Route: 048
  9. PHOSLO [Concomitant]
  10. FOLATE [Concomitant]
  11. OPTIMARK [Suspect]
     Indication: ANGIOGRAM
     Dosage: UNK
     Dates: start: 20070329, end: 20070329
  12. LISINOPRIL [Concomitant]
     Dosage: 40 MG, QD
     Route: 048
  13. RENAGEL                            /01459901/ [Concomitant]

REACTIONS (27)
  - ANAEMIA [None]
  - LIMB INJURY [None]
  - INSOMNIA [None]
  - DIZZINESS [None]
  - OEDEMA PERIPHERAL [None]
  - WEIGHT DECREASED [None]
  - DECREASED APPETITE [None]
  - CONSTIPATION [None]
  - NAUSEA [None]
  - VOMITING [None]
  - PAIN [None]
  - URINARY RETENTION [None]
  - ABDOMINAL HERNIA [None]
  - DIARRHOEA [None]
  - PARAESTHESIA [None]
  - LETHARGY [None]
  - PNEUMONIA [None]
  - STAPHYLOCOCCAL INFECTION [None]
  - PLEURAL EFFUSION [None]
  - HYPOVOLAEMIA [None]
  - EXCORIATION [None]
  - NEPHROGENIC SYSTEMIC FIBROSIS [None]
  - URINARY TRACT INFECTION [None]
  - PERITONITIS [None]
  - ATRIAL FIBRILLATION [None]
  - HAEMORRHOIDS [None]
  - HYPOTENSION [None]
